FAERS Safety Report 9150728 (Version 1)
Quarter: 2013Q1

REPORT INFORMATION
  Report Type: Report from Study
  Country: DE (occurrence: DE)
  Receive Date: 20130308
  Receipt Date: 20130308
  Transmission Date: 20140127
  Serious: Yes (Life-Threatening, Hospitalization)
  Sender: FDA-Public Use
  Company Number: DE-ROCHE-1198887

PATIENT
  Age: 48 Year
  Sex: Male
  Weight: 183 kg

DRUGS (1)
  1. MIRCERA [Suspect]
     Indication: NEPHROGENIC ANAEMIA
     Dosage: DATE OF LAST DOSE PRIOR TO THE EVENT 29/OCT/2012
     Route: 042
     Dates: start: 20111017

REACTIONS (1)
  - Angina pectoris [Recovered/Resolved]
